FAERS Safety Report 9062524 (Version 1)
Quarter: 2013Q1

REPORT INFORMATION
  Report Type: Spontaneous
  Country: US (occurrence: US)
  Receive Date: 20130111
  Receipt Date: 20130111
  Transmission Date: 20140127
  Serious: No
  Sender: FDA-Public Use
  Company Number: US-VIIV HEALTHCARE LIMITED-A0961981A

PATIENT
  Age: 21 Year
  Sex: Female

DRUGS (1)
  1. COMBIVIR [Suspect]
     Indication: ANTIVIRAL PROPHYLAXIS
     Dosage: 2TAB PER DAY
     Route: 048
     Dates: start: 20111229, end: 20120105

REACTIONS (2)
  - Malaise [Unknown]
  - Nausea [Unknown]
